FAERS Safety Report 8380598-1 (Version None)
Quarter: 2012Q2

REPORT INFORMATION
  Report Type: 
  Country: None (occurrence: None)
  Receive Date: 20120523
  Receipt Date: 20120516
  Transmission Date: 20120825
  Serious: Yes (Hospitalization)
  Sender: FDA-Public Use
  Company Number: BE-BRISTOL-MYERS SQUIBB COMPANY-16517591

PATIENT
  Age: 55 Year
  Sex: Male

DRUGS (14)
  1. MOMETASONE FUROATE [Concomitant]
     Dates: start: 20080805
  2. METFORMIN HCL [Concomitant]
     Dates: start: 20100920
  3. EZETIMIBE [Concomitant]
     Dates: start: 20090901
  4. MYCOPHENOLIC ACID [Suspect]
     Indication: RENAL TRANSPLANT
     Dates: start: 20070423
  5. GLURENORM [Concomitant]
     Dates: start: 20091007
  6. AGGRENOX [Concomitant]
     Dates: start: 20070422
  7. SIMVASTATIN [Concomitant]
     Dates: start: 20070115
  8. ENOXAPARIN [Concomitant]
     Dates: start: 20100417
  9. GLIQUIDONE [Concomitant]
     Dates: start: 20061007
  10. NYSTATIN [Concomitant]
     Dates: start: 20070416
  11. ACETYLCYSTEINE [Concomitant]
     Dates: start: 20080121
  12. BELATACEPT [Suspect]
     Indication: RENAL TRANSPLANT
     Dosage: 1 MONTHLY
     Route: 042
     Dates: start: 20061004
  13. EZETIMIBE/SIMVASTATIN [Concomitant]
     Dates: start: 20100920
  14. DOVOBET [Concomitant]
     Dates: start: 20080805

REACTIONS (3)
  - OEDEMA PERIPHERAL [None]
  - LYMPHANGITIS [None]
  - CELLULITIS [None]
